FAERS Safety Report 4536945-1 (Version None)
Quarter: 2004Q4

REPORT INFORMATION
  Report Type: 
  Country: None (occurrence: None)
  Receive Date: 20041220
  Receipt Date: 20041206
  Transmission Date: 20050328
  Serious: Yes (Other)
  Sender: FDA-Public Use
  Company Number: 2004105652

PATIENT
  Age: 57 Year
  Sex: 0

DRUGS (2)
  1. ATARAX [Suspect]
     Indication: PREMEDICATION
     Dosage: 1 IN 1 D, ORAL
     Route: 048
     Dates: start: 20041122, end: 20041123
  2. DICLOFENAC SODIUM [Concomitant]

REACTIONS (4)
  - ANAL HAEMORRHAGE [None]
  - DRUG HYPERSENSITIVITY [None]
  - EROSIVE BALANITIS [None]
  - OEDEMA GENITAL [None]
